FAERS Safety Report 7094445-1 (Version None)
Quarter: 2010Q4

REPORT INFORMATION
  Report Type: 
  Country: None (occurrence: None)
  Receive Date: 20101110
  Receipt Date: 20101028
  Transmission Date: 20110411
  Serious: Yes (Hospitalization, Other)
  Sender: FDA-Public Use
  Company Number: PHHY2010PL73323

PATIENT
  Sex: Female
  Weight: 84 kg

DRUGS (1)
  1. SANDIMMUNE [Suspect]
     Dosage: 250 MG, QD
     Route: 048
     Dates: start: 20101011, end: 20101013

REACTIONS (6)
  - ABDOMINAL PAIN [None]
  - FLATULENCE [None]
  - HEADACHE [None]
  - NAUSEA [None]
  - TONGUE OEDEMA [None]
  - TONGUE ULCERATION [None]
